FAERS Safety Report 5463997-7 (Version None)
Quarter: 2007Q3

REPORT INFORMATION
  Report Type: 
  Country: None (occurrence: None)
  Receive Date: 20070919
  Receipt Date: 20070914
  Transmission Date: 20080115
  Serious: No
  Sender: FDA-Public Use
  Company Number: 07-235

PATIENT
  Sex: Female

DRUGS (1)
  1. METOPROLOL TARTRATE [Suspect]
     Indication: HYPERTROPHIC CARDIOMYOPATHY
     Dosage: 1/2 TABLET TWICE DAILY; ABOUT 1 YEAR

REACTIONS (2)
  - HEART RATE DECREASED [None]
  - HEART RATE INCREASED [None]
